FAERS Safety Report 20739908 (Version 1)
Quarter: 2022Q2

REPORT INFORMATION
  Report Type: Spontaneous
  Country: CN (occurrence: CN)
  Receive Date: 20220422
  Receipt Date: 20220422
  Transmission Date: 20220720
  Serious: Yes (Hospitalization, Other)
  Sender: FDA-Public Use
  Company Number: CN-GLAXOSMITHKLINE-CN2022APC067669

PATIENT
  Age: 39 Year
  Sex: Male
  Weight: 72 kg

DRUGS (3)
  1. LAMOTRIGINE [Suspect]
     Active Substance: LAMOTRIGINE
     Indication: Epilepsy
     Dosage: 12.5 MG, TID
     Route: 048
     Dates: start: 20220314
  2. LAMOTRIGINE [Suspect]
     Active Substance: LAMOTRIGINE
     Dosage: 25 MG, TID
     Route: 048
     Dates: start: 20220321
  3. LAMOTRIGINE [Suspect]
     Active Substance: LAMOTRIGINE
     Dosage: 12.5 MG, TID
     Route: 048
     Dates: start: 20220328, end: 20220330

REACTIONS (12)
  - Rash vesicular [Recovering/Resolving]
  - Pruritus [Recovering/Resolving]
  - Pyrexia [Recovering/Resolving]
  - Drug eruption [Unknown]
  - Erythema multiforme [Recovering/Resolving]
  - Rash [Recovering/Resolving]
  - Macule [Unknown]
  - Skin lesion [Unknown]
  - Skin plaque [Recovering/Resolving]
  - Pustule [Unknown]
  - Oral mucosa erosion [Unknown]
  - Mouth ulceration [Unknown]

NARRATIVE: CASE EVENT DATE: 20220324
